FAERS Safety Report 6846917-X (Version None)
Quarter: 2010Q3

REPORT INFORMATION
  Report Type: 
  Country: None (occurrence: None)
  Receive Date: 20100715
  Receipt Date: 20070919
  Transmission Date: 20110219
  Serious: No
  Sender: FDA-Public Use
  Company Number: US-PFIZER INC-2007079948

PATIENT
  Sex: Female
  Weight: 58.5 kg

DRUGS (3)
  1. CHANTIX [Suspect]
     Indication: SMOKING CESSATION THERAPY
     Route: 048
     Dates: start: 20070912
  2. ZOLOFT [Concomitant]
  3. CONTRACEPTIVE, UNSPECIFIED [Concomitant]
     Indication: CONTRACEPTION

REACTIONS (4)
  - DRY MOUTH [None]
  - INCORRECT DOSE ADMINISTERED [None]
  - NAUSEA [None]
  - VOMITING [None]
